FAERS Safety Report 17039529 (Version 2)
Quarter: 2019Q4

REPORT INFORMATION
  Report Type: Spontaneous
  Country: IT (occurrence: IT)
  Receive Date: 20191115
  Receipt Date: 20191120
  Transmission Date: 20200122
  Serious: Yes (Hospitalization, Other)
  Sender: FDA-Public Use
  Company Number: IT-CELLTRION INC.-2019IT026285

PATIENT

DRUGS (2)
  1. BENDAMUSTINE [Suspect]
     Active Substance: BENDAMUSTINE
     Indication: CHRONIC LYMPHOCYTIC LEUKAEMIA
     Dosage: UNK
     Route: 065
  2. RITUXIMAB (UNKNOWN) [Suspect]
     Active Substance: RITUXIMAB
     Indication: CHRONIC LYMPHOCYTIC LEUKAEMIA
     Dosage: UNK
     Route: 065

REACTIONS (9)
  - Hypoacusis [Unknown]
  - Pyrexia [Unknown]
  - Superinfection bacterial [Recovered/Resolved]
  - Pustule [Unknown]
  - Herpes zoster [Recovered/Resolved]
  - Rash maculo-papular [Unknown]
  - Blister [Unknown]
  - Eye swelling [Unknown]
  - Headache [Unknown]
